FAERS Safety Report 8264187-5 (Version None)
Quarter: 2012Q2

REPORT INFORMATION
  Report Type: 
  Country: None (occurrence: None)
  Receive Date: 20120403
  Receipt Date: 20120324
  Transmission Date: 20120825
  Serious: Yes (Other)
  Sender: FDA-Public Use
  Company Number: 2011SP054760

PATIENT
  Sex: Male

DRUGS (2)
  1. RIBAVIRIN [Suspect]
     Indication: HEPATITIS C
     Dosage: ;UNK;UNK;UNK;UNK
     Dates: start: 20020101
  2. RIBAVIRIN [Suspect]
     Indication: HEPATITIS C
     Dosage: ;UNK;UNK;UNK;UNK
     Dates: start: 20111118

REACTIONS (5)
  - WEIGHT DECREASED [None]
  - ALCOHOL USE [None]
  - DYSGEUSIA [None]
  - DRUG ABUSE [None]
  - ANXIETY [None]
